FAERS Safety Report 8364552-1 (Version None)
Quarter: 2012Q2

REPORT INFORMATION
  Report Type: 
  Country: None (occurrence: None)
  Receive Date: 20120516
  Receipt Date: 20120511
  Transmission Date: 20120825
  Serious: Yes (Other)
  Sender: FDA-Public Use
  Company Number: US-BAYER-2012-046968

PATIENT

DRUGS (1)
  1. NAPROXEN SODIUM [Suspect]
     Indication: ABDOMINAL PAIN

REACTIONS (1)
  - ABDOMINAL PAIN [None]
